FAERS Safety Report 5609448-0 (Version None)
Quarter: 2008Q1

REPORT INFORMATION
  Report Type: 
  Country: None (occurrence: None)
  Receive Date: 20080131
  Receipt Date: 20080118
  Transmission Date: 20080703
  Serious: Yes (Other)
  Sender: FDA-Public Use
  Company Number: FR-AMGEN-UK251060

PATIENT
  Sex: Male

DRUGS (4)
  1. ARANESP [Suspect]
     Indication: ANAEMIA OF MALIGNANT DISEASE
     Route: 058
     Dates: start: 20070616, end: 20070808
  2. ENDOXAN [Concomitant]
     Route: 048
  3. TARDYFERON [Concomitant]
     Route: 065
  4. IRON [Concomitant]
     Route: 048

REACTIONS (2)
  - CARDIAC MURMUR [None]
  - CONVULSION [None]
